FAERS Safety Report 8761485 (Version 2)
Quarter: 2012Q4

REPORT INFORMATION
  Report Type: 
  Country: NL (occurrence: NL)
  Receive Date: 20120829
  Receipt Date: 20121213
  Transmission Date: 20130627
  Serious: Yes (Hospitalization)
  Sender: FDA-Public Use
  Company Number: NL-AMGEN-NLDSP2012054374

PATIENT
  Age: 47 Year
  Sex: Female
  Weight: 82 kg

DRUGS (4)
  1. ENBREL [Suspect]
     Indication: RHEUMATOID ARTHRITIS
     Dosage: 50 mg, weekly
     Dates: start: 200901
  2. SULFASALAZINE [Concomitant]
     Dosage: 500 mg, 2x/day
     Dates: start: 200701
  3. IBUPROFEN [Concomitant]
     Dosage: 600 mg, 2x/day
     Dates: start: 201112
  4. AMITRIPTYLINE [Concomitant]
     Dosage: 10 mg, 1x/day
     Dates: start: 201112

REACTIONS (1)
  - Breast cancer female [Recovering/Resolving]
